FAERS Safety Report 19969090 (Version 2)
Quarter: 2021Q4

REPORT INFORMATION
  Report Type: Spontaneous
  Country: IE (occurrence: IE)
  Receive Date: 20211019
  Receipt Date: 20211025
  Transmission Date: 20220303
  Serious: Yes (Hospitalization, Other)
  Sender: FDA-Public Use
  Company Number: IE-SAMSUNG BIOEPIS-SB-2021-24473

PATIENT
  Age: 60 Year
  Sex: Male

DRUGS (1)
  1. ETANERCEPT [Suspect]
     Active Substance: ETANERCEPT
     Indication: Ankylosing spondylitis
     Dosage: UNKNOWN (12 YEARS)
     Route: 065

REACTIONS (5)
  - Meningitis Escherichia [Recovering/Resolving]
  - CNS ventriculitis [Recovering/Resolving]
  - Infection [Recovering/Resolving]
  - Pyelonephritis [Unknown]
  - Immunosuppression [Unknown]
